FAERS Safety Report 12068651 (Version 2)
Quarter: 2016Q1

REPORT INFORMATION
  Report Type: Report from Study
  Country: KR (occurrence: KR)
  Receive Date: 20160211
  Receipt Date: 20160314
  Transmission Date: 20160526
  Serious: No
  Sender: FDA-Public Use
  Company Number: PHHY2016KR017011

PATIENT
  Age: 48 Year
  Sex: Female

DRUGS (2)
  1. FEROBA-YOU [Concomitant]
     Indication: ANAEMIA
     Dosage: 512 MG
     Route: 048
     Dates: start: 20140812, end: 20141211
  2. TASIGNA [Suspect]
     Active Substance: NILOTINIB
     Indication: CHRONIC MYELOID LEUKAEMIA
     Dosage: 600 MG, QD
     Route: 048
     Dates: start: 20140731, end: 20150803

REACTIONS (3)
  - Headache [Recovered/Resolved]
  - Pelvic pain [Recovered/Resolved]
  - Eyelid function disorder [Recovered/Resolved]

NARRATIVE: CASE EVENT DATE: 20140807
